FAERS Safety Report 15866711 (Version 1)
Quarter: 2019Q1

REPORT INFORMATION
  Report Type: Spontaneous
  Country: IR (occurrence: IR)
  Receive Date: 20190125
  Receipt Date: 20190125
  Transmission Date: 20190417
  Serious: Yes (Death, Hospitalization)
  Sender: FDA-Public Use
  Company Number: IR-FRESENIUS KABI-FK201900774

PATIENT
  Age: 8 Year
  Sex: Female

DRUGS (2)
  1. RIFAMPIN (MANUFACTURER UNKNOWN) [Suspect]
     Active Substance: RIFAMPIN
     Indication: BRUCELLOSIS
     Dosage: UNKNOWN
     Route: 065
  2. SULFAMETHOXAZOLE/TRIMETHOPRIM [Suspect]
     Active Substance: SULFAMETHOXAZOLE\TRIMETHOPRIM
     Indication: BRUCELLOSIS
     Dosage: UNKNOWN
     Route: 065

REACTIONS (3)
  - Drug reaction with eosinophilia and systemic symptoms [Fatal]
  - Septic shock [Fatal]
  - Nosocomial infection [Fatal]
